FAERS Safety Report 22147657 (Version 1)
Quarter: 2023Q1

REPORT INFORMATION
  Report Type: Spontaneous
  Country: US (occurrence: None)
  Receive Date: 20230328
  Receipt Date: 20230328
  Transmission Date: 20230418
  Serious: Yes (Hospitalization)
  Sender: FDA-Public Use
  Company Number: None

PATIENT
  Age: 47 Year
  Sex: Male
  Weight: 69.9 kg

DRUGS (1)
  1. TECARTUS [Suspect]
     Active Substance: BREXUCABTAGENE AUTOLEUCEL

REACTIONS (3)
  - Immune effector cell-associated neurotoxicity syndrome [None]
  - Coma [None]
  - Neurotoxicity [None]

NARRATIVE: CASE EVENT DATE: 20230205
